FAERS Safety Report 4730216-6 (Version None)
Quarter: 2005Q3

REPORT INFORMATION
  Report Type: 
  Country: None (occurrence: None)
  Receive Date: 20050801
  Receipt Date: 20050719
  Transmission Date: 20060218
  Serious: Yes (Other)
  Sender: FDA-Public Use
  Company Number: US-GLAXOSMITHKLINE-A0566840A

PATIENT
  Age: 79 Year
  Sex: Female
  Weight: 50 kg

DRUGS (6)
  1. CITRUCEL [Suspect]
     Indication: GASTROINTESTINAL DISORDER
     Route: 048
     Dates: start: 20050630
  2. BETAPACE [Concomitant]
     Route: 048
  3. PLAVIX [Concomitant]
     Route: 048
  4. CLARINEX [Concomitant]
     Indication: MULTIPLE ALLERGIES
  5. NASACORT AQ [Concomitant]
     Indication: MULTIPLE ALLERGIES
  6. FOSAMAX [Concomitant]

REACTIONS (4)
  - FATIGUE [None]
  - FREQUENT BOWEL MOVEMENTS [None]
  - RECTAL DISCHARGE [None]
  - RECTAL HAEMORRHAGE [None]
